FAERS Safety Report 9882311 (Version 1)
Quarter: 2014Q1

REPORT INFORMATION
  Report Type: Spontaneous
  Country: US (occurrence: US)
  Receive Date: 20140207
  Receipt Date: 20140207
  Transmission Date: 20141002
  Serious: Yes (Hospitalization)
  Sender: FDA-Public Use
  Company Number: US-GLAXOSMITHKLINE-A1058883A

PATIENT
  Sex: Female

DRUGS (7)
  1. ADVAIR [Suspect]
     Indication: ASTHMA
     Dosage: 1PUFF TWICE PER DAY
     Route: 055
     Dates: start: 2008
  2. PRO-AIR [Concomitant]
     Route: 055
  3. PREDNISONE [Concomitant]
  4. SINGULAIR [Concomitant]
  5. FLONASE [Concomitant]
  6. ZYRTEC [Concomitant]
  7. ALBUTEROL NEBULIZER [Concomitant]

REACTIONS (10)
  - Pneumonia [Unknown]
  - Chronic sinusitis [Unknown]
  - Nasal polyps [Unknown]
  - Asthma [Not Recovered/Not Resolved]
  - Middle insomnia [Not Recovered/Not Resolved]
  - Dyspnoea [Not Recovered/Not Resolved]
  - Cough [Not Recovered/Not Resolved]
  - Bronchitis [Unknown]
  - Therapeutic response decreased [Not Recovered/Not Resolved]
  - Extra dose administered [Unknown]
